FAERS Safety Report 4322549-2 (Version None)
Quarter: 2004Q1

REPORT INFORMATION
  Report Type: 
  Country: None (occurrence: None)
  Receive Date: 20040323
  Receipt Date: 20040323
  Transmission Date: 20041129
  Serious: Yes (Disabling)
  Sender: FDA-Public Use
  Company Number: None

PATIENT
  Age: 48 Year
  Sex: Female
  Weight: 54.4316 kg

DRUGS (3)
  1. ZICAM MATRIXX INITIATIVES [Suspect]
     Indication: NASOPHARYNGITIS
     Dosage: 2-3 SPRAYS NASAL SPRA
     Route: 045
     Dates: start: 20040318, end: 20040320
  2. ZICAM MATRIXX INITIATIVES [Suspect]
     Indication: SEASONAL ALLERGY
     Dosage: 2-3 SPRAYS NASAL SPRA
     Route: 045
     Dates: start: 20040318, end: 20040320
  3. ZICAM MATRIXX INITIATIVES [Suspect]
     Indication: SINUS DISORDER
     Dosage: 2-3 SPRAYS NASAL SPRA
     Route: 045
     Dates: start: 20040318, end: 20040320

REACTIONS (2)
  - AGEUSIA [None]
  - ANOSMIA [None]
